FAERS Safety Report 4492968-2 (Version None)
Quarter: 2004Q3

REPORT INFORMATION
  Report Type: 
  Country: None (occurrence: None)
  Receive Date: 20040921
  Receipt Date: 20040304
  Transmission Date: 20050211
  Serious: Yes (Death)
  Sender: FDA-Public Use
  Company Number: 163-20785-04030142 (0)

PATIENT
  Age: 74 Year
  Sex: Female

DRUGS (1)
  1. THALOMID [Suspect]
     Indication: BLADDER CANCER
     Dosage: 200 MG, QHS, ORAL
     Route: 048
     Dates: start: 20030301, end: 20031101

REACTIONS (2)
  - DEATH [None]
  - DISEASE PROGRESSION [None]
